FAERS Safety Report 15039716 (Version 1)
Quarter: 2018Q2

REPORT INFORMATION
  Report Type: Spontaneous
  Country: KR (occurrence: KR)
  Receive Date: 20180620
  Receipt Date: 20180620
  Transmission Date: 20180711
  Serious: Yes (Death, Other)
  Sender: FDA-Public Use
  Company Number: KR-009507513-1806KOR006903

PATIENT
  Sex: Male

DRUGS (4)
  1. KEYTRUDA [Suspect]
     Active Substance: PEMBROLIZUMAB
     Indication: MALIGNANT NEOPLASM OF UNKNOWN PRIMARY SITE
  2. KEYTRUDA [Suspect]
     Active Substance: PEMBROLIZUMAB
     Indication: CHEMOTHERAPY
  3. KEYTRUDA [Suspect]
     Active Substance: PEMBROLIZUMAB
     Indication: CONNECTIVE TISSUE NEOPLASM
     Dosage: UNK
     Dates: start: 20180507
  4. KEYTRUDA [Suspect]
     Active Substance: PEMBROLIZUMAB
     Indication: SOFT TISSUE NEOPLASM

REACTIONS (2)
  - Death [Fatal]
  - Product use in unapproved indication [Unknown]

NARRATIVE: CASE EVENT DATE: 2018
